FAERS Safety Report 9461347 (Version 2)
Quarter: 2013Q3

REPORT INFORMATION
  Report Type: Spontaneous
  Country: BE (occurrence: BE)
  Receive Date: 20130816
  Receipt Date: 20130902
  Transmission Date: 20140515
  Serious: Yes (Other)
  Sender: FDA-Public Use
  Company Number: BE-JNJFOC-20130600914

PATIENT
  Age: 34 Year
  Sex: Female
  Weight: 69 kg

DRUGS (4)
  1. SIMPONI [Suspect]
     Indication: ANKYLOSING SPONDYLITIS
     Route: 058
     Dates: start: 201302
  2. IMPLANON NXT [Concomitant]
     Indication: CONTRACEPTION
     Route: 058
     Dates: start: 20120203
  3. IMPLANON [Concomitant]
     Route: 065
  4. MERCILON [Concomitant]
     Indication: CONTRACEPTION
     Route: 065
     Dates: start: 2008, end: 2012

REACTIONS (2)
  - Cervical dysplasia [Unknown]
  - Papilloma viral infection [Unknown]
